FAERS Safety Report 24613815 (Version 2)
Quarter: 2025Q1

REPORT INFORMATION
  Report Type: Spontaneous
  Country: ES (occurrence: ES)
  Receive Date: 20241113
  Receipt Date: 20250204
  Transmission Date: 20250409
  Serious: Yes (Hospitalization, Other)
  Sender: AUROBINDO
  Company Number: ES-002147023-NVSC2023ES159410

PATIENT
  Age: 59 Year
  Sex: Female

DRUGS (2)
  1. FINGOLIMOD [Suspect]
     Active Substance: FINGOLIMOD
     Indication: Multiple sclerosis
     Dosage: 5 MICROGRAM/KILOGRAM, ONCE A DAY (5 MCG/KG/DAY)
     Route: 065
     Dates: start: 2016
  2. FILGRASTIM [Suspect]
     Active Substance: FILGRASTIM
     Indication: Progressive multifocal leukoencephalopathy
     Dosage: 390 MICROGRAM, ONCE A DAY
     Route: 065

REACTIONS (6)
  - Progressive multifocal leukoencephalopathy [Recovered/Resolved]
  - Lymphopenia [Recovered/Resolved]
  - Multiple sclerosis relapse [Unknown]
  - Condition aggravated [Unknown]
  - Off label use [Unknown]
  - Drug effective for unapproved indication [Unknown]
